FAERS Safety Report 21522682 (Version 2)
Quarter: 2022Q4

REPORT INFORMATION
  Report Type: Report from Study
  Country: US (occurrence: US)
  Receive Date: 20221029
  Receipt Date: 20221201
  Transmission Date: 20230113
  Serious: Yes (Other)
  Sender: FDA-Public Use
  Company Number: US-ABBVIE-4178052

PATIENT
  Sex: Male

DRUGS (3)
  1. VENCLEXTA [Suspect]
     Active Substance: VENETOCLAX
     Indication: Acute monocytic leukaemia
     Route: 048
     Dates: start: 202206
  2. XOSPATA [Suspect]
     Active Substance: GILTERITINIB
     Indication: Acute monocytic leukaemia
     Route: 048
     Dates: start: 20220610
  3. XOSPATA [Suspect]
     Active Substance: GILTERITINIB
     Indication: Acute monocytic leukaemia
     Dosage: FIRST ADMIN DATE: 2022?DOSE DECREASED
     Route: 048

REACTIONS (3)
  - Pulmonary fibrosis [Unknown]
  - Heart rate decreased [Unknown]
  - Diarrhoea [Unknown]
